FAERS Safety Report 11445992 (Version 2)
Quarter: 2015Q4

REPORT INFORMATION
  Report Type: Spontaneous
  Country: US (occurrence: US)
  Receive Date: 20150902
  Receipt Date: 20151103
  Transmission Date: 20160304
  Serious: Yes (Hospitalization)
  Sender: FDA-Public Use
  Company Number: US-JNJFOC-20150900666

PATIENT
  Age: 55 Year
  Sex: Male

DRUGS (8)
  1. XARELTO [Suspect]
     Active Substance: RIVAROXABAN
     Indication: PULMONARY EMBOLISM
     Route: 048
     Dates: start: 20130806, end: 20130823
  2. WARFARIN [Suspect]
     Active Substance: WARFARIN
     Indication: PULMONARY THROMBOSIS
     Route: 065
     Dates: start: 201009
  3. LOVENOX [Suspect]
     Active Substance: ENOXAPARIN SODIUM
     Indication: PULMONARY THROMBOSIS
     Route: 065
     Dates: start: 20130823, end: 2013
  4. LOVENOX [Suspect]
     Active Substance: ENOXAPARIN SODIUM
     Indication: PULMONARY THROMBOSIS
     Route: 065
     Dates: start: 201009
  5. HEPARIN [Suspect]
     Active Substance: HEPARIN SODIUM
     Indication: PULMONARY THROMBOSIS
     Route: 065
     Dates: start: 201009
  6. WARFARIN [Suspect]
     Active Substance: WARFARIN
     Indication: PULMONARY THROMBOSIS
     Route: 065
     Dates: start: 20130823
  7. HEPARIN [Suspect]
     Active Substance: HEPARIN SODIUM
     Indication: PULMONARY THROMBOSIS
     Route: 065
     Dates: start: 20130823
  8. HYDROCODONE [Concomitant]
     Active Substance: HYDROCODONE
     Indication: PRODUCT USED FOR UNKNOWN INDICATION
     Route: 065

REACTIONS (1)
  - Pulmonary embolism [Recovering/Resolving]

NARRATIVE: CASE EVENT DATE: 20130823
